FAERS Safety Report 9915817 (Version 1)
Quarter: 2014Q1

REPORT INFORMATION
  Report Type: Spontaneous
  Country: US (occurrence: None)
  Receive Date: 20140219
  Receipt Date: 20140219
  Transmission Date: 20141002
  Serious: Yes (Other)
  Sender: FDA-Public Use
  Company Number: None

PATIENT
  Age: 44 Year
  Sex: Female
  Weight: 59.88 kg

DRUGS (4)
  1. SUBOXONE [Suspect]
     Indication: DRUG DEPENDENCE
     Dates: start: 201305
  2. HCTZ [Concomitant]
  3. ATENOLOL [Concomitant]
  4. ADDERALL [Concomitant]

REACTIONS (3)
  - Rash [None]
  - Dyspnoea [None]
  - Urticaria [None]
